FAERS Safety Report 6553537-3 (Version None)
Quarter: 2010Q1

REPORT INFORMATION
  Report Type: 
  Country: None (occurrence: None)
  Receive Date: 20100122
  Receipt Date: 20100108
  Transmission Date: 20100710
  Serious: Yes (Hospitalization, Other)
  Sender: FDA-Public Use
  Company Number: 2009-190754-NL

PATIENT
  Age: 27 Year
  Sex: Female
  Weight: 63 kg

DRUGS (2)
  1. NUVARING [Suspect]
     Indication: CONTRACEPTION
     Dates: start: 20060101, end: 20080101
  2. PEPCID [Concomitant]

REACTIONS (17)
  - ANTIPHOSPHOLIPID ANTIBODIES POSITIVE [None]
  - BACK PAIN [None]
  - BREAST ENLARGEMENT [None]
  - BREAST PAIN [None]
  - CHEST PAIN [None]
  - FACTOR V DEFICIENCY [None]
  - FIBROCYSTIC BREAST DISEASE [None]
  - FLANK PAIN [None]
  - FOLLICULITIS [None]
  - LYMPHADENOPATHY MEDIASTINAL [None]
  - PLEURAL EFFUSION [None]
  - PLEURISY [None]
  - PNEUMONIA [None]
  - PULMONARY EMBOLISM [None]
  - PULMONARY SARCOIDOSIS [None]
  - RHEUMATOID ARTHRITIS [None]
  - STAPHYLOCOCCAL SKIN INFECTION [None]
